FAERS Safety Report 6396365-4 (Version None)
Quarter: 2009Q4

REPORT INFORMATION
  Report Type: 
  Country: None (occurrence: None)
  Receive Date: 20091012
  Receipt Date: 20090930
  Transmission Date: 20100525
  Serious: Yes (Other)
  Sender: FDA-Public Use
  Company Number: PHHY2008US32357

PATIENT

DRUGS (2)
  1. TASIGNA [Suspect]
  2. SPRYCEL [Suspect]

REACTIONS (1)
  - PLEURAL EFFUSION [None]
